FAERS Safety Report 11090536 (Version 1)
Quarter: 2015Q2

REPORT INFORMATION
  Report Type: Spontaneous
  Country: US (occurrence: US)
  Receive Date: 20150505
  Receipt Date: 20150505
  Transmission Date: 20150821
  Serious: No
  Sender: FDA-Public Use
  Company Number: US-PFIZER INC-2015037761

PATIENT
  Age: 51 Year
  Sex: Male
  Weight: 111.11 kg

DRUGS (4)
  1. NEURONTIN [Suspect]
     Active Substance: GABAPENTIN
     Indication: DIABETIC NEUROPATHY
     Dosage: 1000 MG, UNK
  2. NEURONTIN [Suspect]
     Active Substance: GABAPENTIN
     Indication: NEURALGIA
     Dosage: 300 MG, UNK
     Dates: start: 201010
  3. NEURONTIN [Suspect]
     Active Substance: GABAPENTIN
     Dosage: 800 MG, UNK
     Dates: end: 2014
  4. INSULIN [Concomitant]
     Active Substance: INSULIN NOS
     Indication: PANCREATIC DISORDER
     Dosage: UNK (SLIDING SCALE)
     Dates: start: 201010

REACTIONS (2)
  - Product size issue [Unknown]
  - Drug tolerance increased [Unknown]
